FAERS Safety Report 19101131 (Version 1)
Quarter: 2021Q2

REPORT INFORMATION
  Report Type: Spontaneous
  Country: IT (occurrence: IT)
  Receive Date: 20210407
  Receipt Date: 20210407
  Transmission Date: 20210717
  Serious: Yes (Other)
  Sender: FDA-Public Use
  Company Number: IT-SA-2021SA111375

PATIENT
  Age: 47 Year
  Sex: Female

DRUGS (3)
  1. OXALIPLATIN. [Suspect]
     Active Substance: OXALIPLATIN
     Dosage: UNK
     Dates: start: 20210303
  2. CIPRALEX [Concomitant]
     Active Substance: ESCITALOPRAM OXALATE
     Dosage: UNK
  3. LUCEN [ESOMEPRAZOLE SODIUM] [Concomitant]
     Dosage: UNK

REACTIONS (3)
  - Stridor [Recovering/Resolving]
  - Hypersensitivity [Recovering/Resolving]
  - Band sensation [Recovering/Resolving]

NARRATIVE: CASE EVENT DATE: 20210303
